FAERS Safety Report 13521378 (Version 1)
Quarter: 2017Q2

REPORT INFORMATION
  Report Type: Spontaneous
  Country: US (occurrence: US)
  Receive Date: 20170505
  Receipt Date: 20170505
  Transmission Date: 20170830
  Serious: Yes (Death)
  Sender: FDA-Public Use
  Company Number: None

PATIENT
  Age: 88 Year
  Sex: Male

DRUGS (9)
  1. PROLIA [Suspect]
     Active Substance: DENOSUMAB
     Indication: PROSTATE CANCER
     Dosage: FREQUENCY - Q 6 MONTHS
     Route: 058
     Dates: start: 20141014, end: 20170414
  2. BABY ASPIRIN [Concomitant]
     Active Substance: ASPIRIN
  3. GLIPIZIDE. [Concomitant]
     Active Substance: GLIPIZIDE
  4. BICALUTAMIDE. [Concomitant]
     Active Substance: BICALUTAMIDE
  5. ATORVASTATIN [Concomitant]
     Active Substance: ATORVASTATIN
  6. CALCIUM [Concomitant]
     Active Substance: CALCIUM
  7. METOPROLOL. [Concomitant]
     Active Substance: METOPROLOL
  8. ELIGARD [Suspect]
     Active Substance: LEUPROLIDE ACETATE
     Indication: PROSTATE CANCER
     Dosage: FREQUENCY - Q 6 MONTHS
     Route: 058
     Dates: start: 20151014, end: 20170414
  9. ST JOSEPH^S AS CHEW [Concomitant]

REACTIONS (4)
  - Cardiac operation [None]
  - Post procedural complication [None]
  - Brain neoplasm [None]
  - Thrombosis [None]

NARRATIVE: CASE EVENT DATE: 20170417
